FAERS Safety Report 4338844-7 (Version None)
Quarter: 2004Q2

REPORT INFORMATION
  Report Type: 
  Country: None (occurrence: None)
  Receive Date: 20040414
  Receipt Date: 20040126
  Transmission Date: 20050107
  Serious: Yes (Hospitalization, Other)
  Sender: FDA-Public Use
  Company Number: US-MERCK-0401USA01988

PATIENT

DRUGS (1)
  1. VIOXX [Suspect]
     Route: 048

REACTIONS (3)
  - ARTHROPATHY [None]
  - FLUID RETENTION [None]
  - POST PROCEDURAL COMPLICATION [None]
